FAERS Safety Report 6069850-2 (Version None)
Quarter: 2009Q1

REPORT INFORMATION
  Report Type: 
  Country: None (occurrence: None)
  Receive Date: 20090209
  Receipt Date: 20090203
  Transmission Date: 20090719
  Serious: Yes (Hospitalization)
  Sender: FDA-Public Use
  Company Number: US-BIOGENIDEC-2008BI035152

PATIENT
  Age: 45 Year
  Sex: Female

DRUGS (2)
  1. AVONEX [Suspect]
     Indication: MULTIPLE SCLEROSIS
     Route: 030
     Dates: start: 20010315, end: 20050402
  2. AVONEX [Suspect]
     Route: 030
     Dates: start: 20080510, end: 20081101

REACTIONS (6)
  - DRUG DELIVERY DEVICE IMPLANTATION [None]
  - HEMIPARESIS [None]
  - INFLUENZA LIKE ILLNESS [None]
  - MUSCLE SPASMS [None]
  - NASOPHARYNGITIS [None]
  - TREMOR [None]
